FAERS Safety Report 5031180-5 (Version None)
Quarter: 2006Q2

REPORT INFORMATION
  Report Type: 
  Country: None (occurrence: None)
  Receive Date: 20060619
  Receipt Date: 20060619
  Transmission Date: 20061013
  Serious: Yes (Life-Threatening, Hospitalization, Disabling)
  Sender: FDA-Public Use
  Company Number: None

PATIENT
  Age: 54 Year
  Sex: Male
  Weight: 81.1939 kg

DRUGS (3)
  1. HALOPERIDOL [Suspect]
     Indication: SCHIZOPHRENIA
     Dosage: 10 MG EVERY 8 HOURS PO
     Route: 048
  2. RISPERDAL CONSTA [Suspect]
     Indication: SCHIZOPHRENIA
     Dosage: 50 MG EVERY 2 WEEKS IM
     Route: 030
  3. BENZTROPIN [Concomitant]

REACTIONS (15)
  - ABASIA [None]
  - APHASIA [None]
  - BACTERIAL INFECTION [None]
  - BODY TEMPERATURE INCREASED [None]
  - DEHYDRATION [None]
  - HYPOTENSION [None]
  - INCONTINENCE [None]
  - MOVEMENT DISORDER [None]
  - MUSCLE RIGIDITY [None]
  - NERVOUS SYSTEM DISORDER [None]
  - PYREXIA [None]
  - SCREAMING [None]
  - TACHYCARDIA [None]
  - TACHYPNOEA [None]
  - THINKING ABNORMAL [None]
